FAERS Safety Report 6575959-7 (Version None)
Quarter: 2010Q1

REPORT INFORMATION
  Report Type: 
  Country: None (occurrence: None)
  Receive Date: 20100209
  Receipt Date: 20100127
  Transmission Date: 20100710
  Serious: Yes (Life-Threatening)
  Sender: FDA-Public Use
  Company Number: TR-GENENTECH-297590

PATIENT
  Sex: Male

DRUGS (8)
  1. MABTHERA [Suspect]
     Indication: CHRONIC LYMPHOCYTIC LEUKAEMIA
     Dosage: 375 UNK, UNK
     Route: 042
     Dates: start: 20091223, end: 20091223
  2. IMMUNE GLOBULIN INTRAVENOUS (HUMAN) [Suspect]
     Indication: CHRONIC LYMPHOCYTIC LEUKAEMIA
     Dosage: 30 G, UNK
     Route: 042
     Dates: start: 20100105, end: 20100105
  3. CYCLOPHOSPHAMIDE [Suspect]
     Indication: CHRONIC LYMPHOCYTIC LEUKAEMIA
     Dosage: 540 MG, UNK
     Route: 065
     Dates: start: 20091223
  4. FLUDARABINE [Suspect]
     Indication: CHRONIC LYMPHOCYTIC LEUKAEMIA
     Dosage: 50 MG, UNK
     Route: 065
     Dates: start: 20091223
  5. CEFEPIME [Concomitant]
     Indication: INFECTION
     Dosage: UNK
     Route: 042
  6. BACTRIM [Concomitant]
     Indication: INFECTION
     Dosage: UNK
     Route: 042
  7. CASPOFUNGIN [Concomitant]
     Indication: INFECTION
     Dosage: 70 MG, UNK
     Route: 042
  8. SEREVENT [Concomitant]
     Indication: DRUG USE FOR UNKNOWN INDICATION
     Dosage: UNK

REACTIONS (1)
  - LUNG DISORDER [None]
